FAERS Safety Report 6127853-3 (Version None)
Quarter: 2009Q1

REPORT INFORMATION
  Report Type: 
  Country: None (occurrence: None)
  Receive Date: 20090323
  Receipt Date: 20090310
  Transmission Date: 20090719
  Serious: Yes (Other)
  Sender: FDA-Public Use
  Company Number: US-ELI_LILLY_AND_COMPANY-US200903002762

PATIENT
  Age: 83 Year
  Sex: Female

DRUGS (2)
  1. FORTEO [Suspect]
     Dosage: UNK, UNK
     Dates: start: 20080801, end: 20090309
  2. ANTIBACTERIALS FOR SYSTEMIC USE [Concomitant]
     Dosage: UNK, UNK
     Dates: start: 20080801, end: 20080801

REACTIONS (13)
  - BRAIN OEDEMA [None]
  - CHEST DISCOMFORT [None]
  - CRYING [None]
  - DRUG HYPERSENSITIVITY [None]
  - DRY MOUTH [None]
  - DYSPHONIA [None]
  - DYSPNOEA [None]
  - FATIGUE [None]
  - FEAR [None]
  - FEELING ABNORMAL [None]
  - HEADACHE [None]
  - MUSCLE SPASMS [None]
  - PALPITATIONS [None]
